FAERS Safety Report 13185837 (Version 1)
Quarter: 2017Q1

REPORT INFORMATION
  Report Type: Spontaneous
  Country: JP (occurrence: JP)
  Receive Date: 20170203
  Receipt Date: 20170203
  Transmission Date: 20170428
  Serious: Yes (Hospitalization)
  Sender: FDA-Public Use
  Company Number: JP-TEVA-735075ISR

PATIENT
  Age: 78 Year
  Sex: Male

DRUGS (1)
  1. TICLOPIDINE [Suspect]
     Active Substance: TICLOPIDINE
     Indication: CEREBRAL INFARCTION
     Dosage: 400 MILLIGRAM DAILY;
     Route: 065

REACTIONS (2)
  - Intraductal papillary-mucinous carcinoma of pancreas [Unknown]
  - Tumour haemorrhage [Unknown]
